FAERS Safety Report 5699358-5 (Version None)
Quarter: 2008Q2

REPORT INFORMATION
  Report Type: 
  Country: None (occurrence: None)
  Receive Date: 20080404
  Receipt Date: 20080324
  Transmission Date: 20081010
  Serious: No
  Sender: FDA-Public Use
  Company Number: 2008-174172-NL

PATIENT
  Age: 49 Year
  Sex: Female

DRUGS (4)
  1. VECURONIUM BROMIDE [Suspect]
     Indication: INDUCTION OF ANAESTHESIA
     Dosage: 1.5 MG/KG ONCE INTRAVENOUS (NOS)
     Route: 042
  2. MIDAZOLAM HCL [Suspect]
     Indication: INDUCTION OF ANAESTHESIA
     Dosage: 0.1 MG/KG ONCE INTRAVENOUS (NOS)
     Route: 042
  3. FENTANYL CITRATE [Suspect]
     Indication: INDUCTION OF ANAESTHESIA
     Dosage: 0.5 UG/KG ONCE INTRAVENOUS (NOS)
     Route: 042
  4. BETAMETHASONE SODIUM PHOSPHATE [Concomitant]

REACTIONS (1)
  - ASTHMA [None]
